FAERS Safety Report 9858325 (Version 3)
Quarter: 2014Q2

REPORT INFORMATION
  Report Type: Report from Study
  Country: CA (occurrence: CA)
  Receive Date: 20140131
  Receipt Date: 20140627
  Transmission Date: 20141212
  Serious: Yes (Other)
  Sender: FDA-Public Use
  Company Number: CA-JNJFOC-20140117979

PATIENT
  Age: 26 Year
  Sex: Male
  Weight: 67 kg

DRUGS (20)
  1. REMICADE [Suspect]
     Indication: JUVENILE IDIOPATHIC ARTHRITIS
     Route: 042
     Dates: start: 20140121
  2. REMICADE [Suspect]
     Indication: JUVENILE IDIOPATHIC ARTHRITIS
     Route: 042
     Dates: start: 20131231
  3. REMICADE [Suspect]
     Indication: JUVENILE IDIOPATHIC ARTHRITIS
     Dosage: 69 TH INFUSION
     Route: 042
     Dates: start: 20050802
  4. METHOTREXATE [Concomitant]
     Route: 058
  5. FOLIC ACID [Concomitant]
     Dosage: 5 DAYS PER WEEK
     Route: 048
  6. VASOTEC [Concomitant]
     Dosage: EVERY OTHER DAY
     Route: 048
  7. ACTONEL [Concomitant]
     Route: 048
  8. NOVONAPROX [Concomitant]
     Route: 048
  9. APO-HYDROXYQUINE [Concomitant]
     Route: 065
  10. APO-NAPROXEN [Concomitant]
     Route: 065
  11. VITAMIN D [Concomitant]
     Route: 065
  12. CALCIUM [Concomitant]
     Route: 065
  13. COVERSYL [Concomitant]
     Route: 065
  14. PREDNISONE [Concomitant]
     Route: 065
  15. APO-WARFARIN [Concomitant]
     Dosage: 2.5MG 1 TAB 4 DAYS OUT OF 7, 1 1/2 TAB 3 DAYS OUT OF 7
     Route: 065
  16. LEUCOVORIN [Concomitant]
     Dosage: 5MG DAY AFTER METHOTREXATE
     Route: 065
  17. PANTOPRAZOLE [Concomitant]
     Route: 065
  18. VALACYCLOVIR [Concomitant]
     Dosage: 500MG 4 TABLET STAT THEN 4 TABLET 12 HRS. LATER
     Route: 065
  19. ONDANSETRON [Concomitant]
     Dosage: 4MG, 2 TABLETS 1 HOUR. BEFORE METHOTREXATE THEN 2 TABLETS 12 HOURS AFTER??INJECTION.
     Route: 065
  20. ACETAMINOPHEN [Concomitant]
     Route: 065

REACTIONS (4)
  - Joint swelling [Not Recovered/Not Resolved]
  - Pain in extremity [Recovered/Resolved]
  - Cyst [Recovering/Resolving]
  - Oedema peripheral [Recovered/Resolved]
